FAERS Safety Report 14680150 (Version 1)
Quarter: 2018Q1

REPORT INFORMATION
  Report Type: Spontaneous
  Country: US (occurrence: US)
  Receive Date: 20180324
  Receipt Date: 20180324
  Transmission Date: 20180509
  Serious: Yes (Other)
  Sender: FDA-Public Use
  Company Number: None

PATIENT
  Age: 30 Year
  Sex: Female
  Weight: 74.84 kg

DRUGS (6)
  1. IBUPROFEN. [Concomitant]
     Active Substance: IBUPROFEN
  2. DEXTROAMPHET SACCHARAT, AMPHET ASPARTATE, DEXTROAMPHET SULFATE AND AMPHET SULFAT [Suspect]
     Active Substance: AMPHETAMINE ASPARTATE\AMPHETAMINE SULFATE\DEXTROAMPHETAMINE SACCHARATE\DEXTROAMPHETAMINE SULFATE
     Indication: ATTENTION DEFICIT/HYPERACTIVITY DISORDER
     Route: 048
     Dates: start: 20171226, end: 201803
  3. DEXTROAMPHET SACCHARAT, AMPHET ASPARTATE, DEXTROAMPHET SULFATE AND AMPHET SULFAT [Suspect]
     Active Substance: AMPHETAMINE ASPARTATE\AMPHETAMINE SULFATE\DEXTROAMPHETAMINE SACCHARATE\DEXTROAMPHETAMINE SULFATE
  4. PENICILLIN [Concomitant]
     Active Substance: PENICILLIN
  5. AMOXICILLIN. [Concomitant]
     Active Substance: AMOXICILLIN
  6. MACROBID [Concomitant]
     Active Substance: NITROFURANTOIN\NITROFURANTOIN MONOHYDRATE

REACTIONS (18)
  - Chromaturia [None]
  - Haematuria [None]
  - Rash erythematous [None]
  - Hypoaesthesia [None]
  - Dental caries [None]
  - Dizziness [None]
  - Dyspnoea [None]
  - Dysphonia [None]
  - Pyrexia [None]
  - Pelvic pain [None]
  - Headache [None]
  - Abdominal pain upper [None]
  - Mandibular mass [None]
  - Swollen tongue [None]
  - Dysuria [None]
  - Rash pruritic [None]
  - Dry mouth [None]
  - Muscular weakness [None]

NARRATIVE: CASE EVENT DATE: 20180126
